FAERS Safety Report 19756591 (Version 7)
Quarter: 2022Q4

REPORT INFORMATION
  Report Type: Report from Study
  Country: US (occurrence: US)
  Receive Date: 20210827
  Receipt Date: 20221111
  Transmission Date: 20230113
  Serious: Yes (Death, Life-Threatening, Hospitalization, Other)
  Sender: FDA-Public Use
  Company Number: US-GILEAD-2021-0544453

PATIENT
  Sex: Female
  Weight: 89 kg

DRUGS (42)
  1. AXICABTAGENE CILOLEUCEL [Suspect]
     Active Substance: AXICABTAGENE CILOLEUCEL
     Indication: B-cell lymphoma
     Dosage: UNK
     Route: 042
     Dates: start: 20210809, end: 20210809
  2. ANAKINRA [Suspect]
     Active Substance: ANAKINRA
     Indication: Product used for unknown indication
     Dosage: 200 MG
     Route: 042
     Dates: start: 20210809, end: 20210822
  3. ANAKINRA [Suspect]
     Active Substance: ANAKINRA
     Dosage: 100 MG
     Route: 042
     Dates: start: 20210823, end: 20210823
  4. FLUDARA [Concomitant]
     Active Substance: FLUDARABINE PHOSPHATE
     Dosage: UNK
     Dates: start: 20210804, end: 20210806
  5. FLUDARA [Concomitant]
     Active Substance: FLUDARABINE PHOSPHATE
  6. CYTOXAN [Concomitant]
     Active Substance: CYCLOPHOSPHAMIDE
     Dosage: UNK
     Dates: start: 20210804, end: 20210806
  7. CYTOXAN [Concomitant]
     Active Substance: CYCLOPHOSPHAMIDE
     Dosage: 1500 MG/M2
     Dates: start: 20210823
  8. CYTOXAN [Concomitant]
     Active Substance: CYCLOPHOSPHAMIDE
  9. MESNEX [Concomitant]
     Active Substance: MESNA
     Dosage: UNK
     Dates: start: 20210804, end: 20210806
  10. MESNEX [Concomitant]
     Active Substance: MESNA
  11. OXYCODONE [Concomitant]
     Active Substance: OXYCODONE
     Indication: Pain
     Dosage: 5-10 MG PRN
     Route: 048
  12. OXYCODONE [Concomitant]
     Active Substance: OXYCODONE
  13. AMICAR [Concomitant]
     Active Substance: AMINOCAPROIC ACID
  14. MIRALAX [Concomitant]
     Active Substance: POLYETHYLENE GLYCOL 3350
     Indication: Constipation
  15. ZYLOPRIM [Concomitant]
     Active Substance: ALLOPURINOL
  16. DESYREL [Concomitant]
     Active Substance: TRAZODONE HYDROCHLORIDE
  17. ZOVIRAX [Concomitant]
     Active Substance: ACYCLOVIR
  18. ZOLOFT [Concomitant]
     Active Substance: SERTRALINE HYDROCHLORIDE
  19. TYLENOL [Concomitant]
     Active Substance: ACETAMINOPHEN
  20. PRILOSEC [Concomitant]
     Active Substance: OMEPRAZOLE MAGNESIUM
  21. COMPAZINE [Concomitant]
     Active Substance: PROCHLORPERAZINE MALEATE
  22. ATIVAN [Concomitant]
     Active Substance: LORAZEPAM
  23. CLARITIN [Concomitant]
     Active Substance: LORATADINE
  24. SINGULAIR [Concomitant]
     Active Substance: MONTELUKAST SODIUM
  25. VITAMINS [Concomitant]
     Active Substance: VITAMINS
  26. LACTATED RINGERS SOLUTION [Concomitant]
     Active Substance: CALCIUM CHLORIDE\POTASSIUM CHLORIDE\SODIUM CHLORIDE\SODIUM LACTATE
  27. SODIUM CHLORIDE [Concomitant]
     Active Substance: SODIUM CHLORIDE
  28. PEPCID [Concomitant]
     Active Substance: FAMOTIDINE
  29. SENNOSIDES [Concomitant]
     Active Substance: SENNOSIDES
  30. POLYETHYLENE GLYCOLS [Concomitant]
     Active Substance: POLYETHYLENE GLYCOLS
  31. COMPAZINE [Concomitant]
     Active Substance: PROCHLORPERAZINE MALEATE
  32. DILAUDID [Concomitant]
     Active Substance: HYDROMORPHONE HYDROCHLORIDE
  33. ZOFRAN [Concomitant]
     Active Substance: ONDANSETRON HYDROCHLORIDE
  34. VITAMINS [Concomitant]
     Active Substance: VITAMINS
  35. PRILOSEC [Concomitant]
     Active Substance: OMEPRAZOLE MAGNESIUM
  36. LACTATED RINGERS SOLUTION [Concomitant]
     Active Substance: CALCIUM CHLORIDE\POTASSIUM CHLORIDE\SODIUM CHLORIDE\SODIUM LACTATE
  37. COMPAZINE [Concomitant]
     Active Substance: PROCHLORPERAZINE MALEATE
  38. POLYETHYLENE GLYCOLS [Concomitant]
     Active Substance: POLYETHYLENE GLYCOLS
  39. ZOFRAN [Concomitant]
     Active Substance: ONDANSETRON HYDROCHLORIDE
  40. CLARITIN [Concomitant]
     Active Substance: LORATADINE
  41. PEPCID [Concomitant]
     Active Substance: FAMOTIDINE
  42. ZOVIRAX [Concomitant]
     Active Substance: ACYCLOVIR

REACTIONS (3)
  - Hypercalcaemia [Fatal]
  - Immune effector cell-associated neurotoxicity syndrome [Fatal]
  - Vaginal haemorrhage [Fatal]
